FAERS Safety Report 9143302 (Version 4)
Quarter: 2013Q2

REPORT INFORMATION
  Report Type: Spontaneous
  Country: US (occurrence: US)
  Receive Date: 20130306
  Receipt Date: 20130607
  Transmission Date: 20140414
  Serious: Yes (Hospitalization)
  Sender: FDA-Public Use
  Company Number: US-B.I. PHARMACEUTICALS,INC./RIDGEFIELD-2013-BI-05260BP

PATIENT
  Age: 78 Year
  Sex: Male
  Weight: 113 kg

DRUGS (25)
  1. PRADAXA [Suspect]
     Indication: ATRIAL FIBRILLATION
     Dosage: 150 MG
     Route: 048
     Dates: start: 20111115, end: 20111215
  2. PRADAXA [Suspect]
     Indication: COAGULOPATHY
  3. NOVOLIN NPH [Concomitant]
     Indication: DIABETES MELLITUS
     Route: 058
  4. SIMVASTATIN [Concomitant]
     Indication: BLOOD CHOLESTEROL
     Dosage: 5 MG
     Route: 048
  5. LISINOPRIL [Concomitant]
     Indication: HYPERTENSION
     Dosage: 20 MG
     Route: 048
  6. SOTALOL [Concomitant]
     Indication: HYPERTENSION
     Dosage: 160 MG
     Route: 048
  7. DILTIAZEM [Concomitant]
     Indication: ARRHYTHMIA
     Dosage: 180 MG
     Route: 048
  8. DONEZEPIL [Concomitant]
     Indication: PARKINSON^S DISEASE
     Dosage: 10 MG
     Route: 048
  9. AZILECT [Concomitant]
     Indication: PARKINSON^S DISEASE
     Dosage: 1 MG
     Route: 048
  10. LEVOTHYROXINE [Concomitant]
     Indication: HYPOTHYROIDISM
     Dosage: 0.075 MCG
     Route: 048
  11. CARBIDOPA/LEVODOPA [Concomitant]
     Indication: PARKINSON^S DISEASE
     Route: 048
  12. DULOSETINE [Concomitant]
     Indication: DEPRESSION
     Dosage: 60 MG
     Route: 048
  13. FOLIC ACID [Concomitant]
     Indication: SUPPLEMENTATION THERAPY
     Dosage: 1 MG
     Route: 048
  14. OCUVITE [Concomitant]
     Indication: EYE DISORDER
     Dosage: 1 MG
     Route: 048
  15. VITAMIN C [Concomitant]
     Indication: SUPPLEMENTATION THERAPY
     Dosage: 500 MG
     Route: 048
  16. MULTIVITAMIN [Concomitant]
  17. VITAMIN D [Concomitant]
     Indication: SUPPLEMENTATION THERAPY
     Dosage: 2000 U
     Route: 048
  18. IRON [Concomitant]
     Indication: SUPPLEMENTATION THERAPY
     Dosage: 5 ML
     Route: 048
  19. IMODIUM [Concomitant]
     Indication: DIARRHOEA
  20. CALCIUM WITH VITAMIN D [Concomitant]
     Indication: SUPPLEMENTATION THERAPY
     Route: 048
  21. BUMETANIDE [Concomitant]
  22. CENTRUM SILVER [Concomitant]
     Indication: SUPPLEMENTATION THERAPY
     Route: 048
  23. METFORMIN [Concomitant]
     Indication: DIABETES MELLITUS
     Dosage: 500 MG
     Route: 048
  24. ASA [Concomitant]
     Indication: CARDIAC DISORDER
     Dosage: 81 MG
     Route: 048
  25. PROTONIX [Concomitant]
     Indication: ANTACID THERAPY
     Dosage: 40 MG
     Route: 048

REACTIONS (1)
  - Upper gastrointestinal haemorrhage [Recovered/Resolved]
